FAERS Safety Report 23514304 (Version 4)
Quarter: 2025Q1

REPORT INFORMATION
  Report Type: Spontaneous
  Country: JP (occurrence: JP)
  Receive Date: 20240212
  Receipt Date: 20250105
  Transmission Date: 20250409
  Serious: Yes (Life-Threatening, Hospitalization, Other)
  Sender: ALEXION PHARMACEUTICALS
  Company Number: 2024A033332

PATIENT
  Age: 68 Year

DRUGS (40)
  1. IMFINZI [Suspect]
     Active Substance: DURVALUMAB
     Indication: Non-small cell lung cancer
     Dosage: 003 MILLIGRAM, Q3W
  2. IMFINZI [Suspect]
     Active Substance: DURVALUMAB
     Dosage: 003 MILLIGRAM, Q3W
     Route: 041
  3. IMFINZI [Suspect]
     Active Substance: DURVALUMAB
     Dosage: 003 MILLIGRAM, Q3W
  4. IMFINZI [Suspect]
     Active Substance: DURVALUMAB
     Dosage: 003 MILLIGRAM, Q3W
     Route: 041
  5. IMFINZI [Suspect]
     Active Substance: DURVALUMAB
     Dosage: 3 MILLIGRAM, Q4W
  6. IMFINZI [Suspect]
     Active Substance: DURVALUMAB
     Dosage: 3 MILLIGRAM, Q4W
     Route: 041
  7. IMFINZI [Suspect]
     Active Substance: DURVALUMAB
     Dosage: 3 MILLIGRAM, Q4W
  8. IMFINZI [Suspect]
     Active Substance: DURVALUMAB
     Dosage: 3 MILLIGRAM, Q4W
     Route: 041
  9. IMJUDO [Suspect]
     Active Substance: TREMELIMUMAB\TREMELIMUMAB-ACTL
     Indication: Non-small cell lung cancer
     Dosage: 3 MILLIGRAM, Q3W
  10. IMJUDO [Suspect]
     Active Substance: TREMELIMUMAB\TREMELIMUMAB-ACTL
     Dosage: 3 MILLIGRAM, Q3W
     Route: 041
  11. IMJUDO [Suspect]
     Active Substance: TREMELIMUMAB\TREMELIMUMAB-ACTL
     Dosage: 3 MILLIGRAM, Q3W
  12. IMJUDO [Suspect]
     Active Substance: TREMELIMUMAB\TREMELIMUMAB-ACTL
     Dosage: 3 MILLIGRAM, Q3W
     Route: 041
  13. CARBOPLATIN [Concomitant]
     Active Substance: CARBOPLATIN
     Indication: Non-small cell lung cancer
     Route: 065
  14. CARBOPLATIN [Concomitant]
     Active Substance: CARBOPLATIN
     Route: 065
  15. CARBOPLATIN [Concomitant]
     Active Substance: CARBOPLATIN
     Route: 065
  16. CARBOPLATIN [Concomitant]
     Active Substance: CARBOPLATIN
     Route: 065
  17. CARBOPLATIN [Concomitant]
     Active Substance: CARBOPLATIN
     Route: 065
  18. CARBOPLATIN [Concomitant]
     Active Substance: CARBOPLATIN
     Route: 065
  19. CARBOPLATIN [Concomitant]
     Active Substance: CARBOPLATIN
     Route: 065
  20. CARBOPLATIN [Concomitant]
     Active Substance: CARBOPLATIN
     Route: 065
  21. CARBOPLATIN [Concomitant]
     Active Substance: CARBOPLATIN
     Route: 065
  22. CARBOPLATIN [Concomitant]
     Active Substance: CARBOPLATIN
     Route: 065
  23. CARBOPLATIN [Concomitant]
     Active Substance: CARBOPLATIN
     Route: 065
  24. CARBOPLATIN [Concomitant]
     Active Substance: CARBOPLATIN
     Route: 065
  25. PEMETREXED [Concomitant]
     Active Substance: PEMETREXED
     Indication: Non-small cell lung cancer
     Dosage: 500 MILLIGRAM/SQ. METER, Q3W
     Route: 065
  26. PEMETREXED [Concomitant]
     Active Substance: PEMETREXED
     Dosage: 500 MILLIGRAM/SQ. METER, Q3W
     Route: 065
  27. PEMETREXED [Concomitant]
     Active Substance: PEMETREXED
     Dosage: 500 MILLIGRAM/SQ. METER, Q3W
     Route: 065
  28. PEMETREXED [Concomitant]
     Active Substance: PEMETREXED
     Dosage: 500 MILLIGRAM/SQ. METER, Q3W
     Route: 065
  29. PEMETREXED [Concomitant]
     Active Substance: PEMETREXED
     Dosage: 400 MILLIGRAM/SQ. METER, Q3W
     Route: 065
  30. PEMETREXED [Concomitant]
     Active Substance: PEMETREXED
     Dosage: 400 MILLIGRAM/SQ. METER, Q3W
     Route: 065
  31. PEMETREXED [Concomitant]
     Active Substance: PEMETREXED
     Dosage: 400 MILLIGRAM/SQ. METER, Q3W
     Route: 065
  32. PEMETREXED [Concomitant]
     Active Substance: PEMETREXED
     Dosage: 400 MILLIGRAM/SQ. METER, Q3W
     Route: 065
  33. PEMETREXED [Concomitant]
     Active Substance: PEMETREXED
     Dosage: 300 MILLIGRAM/SQ. METER, Q3W
     Route: 065
  34. PEMETREXED [Concomitant]
     Active Substance: PEMETREXED
     Dosage: 300 MILLIGRAM/SQ. METER, Q3W
     Route: 065
  35. PEMETREXED [Concomitant]
     Active Substance: PEMETREXED
     Dosage: 300 MILLIGRAM/SQ. METER, Q3W
     Route: 065
  36. PEMETREXED [Concomitant]
     Active Substance: PEMETREXED
     Dosage: 300 MILLIGRAM/SQ. METER, Q3W
     Route: 065
  37. PEMETREXED [Concomitant]
     Active Substance: PEMETREXED
     Dosage: 300 MILLIGRAM/SQ. METER, Q4W
     Route: 065
  38. PEMETREXED [Concomitant]
     Active Substance: PEMETREXED
     Dosage: 300 MILLIGRAM/SQ. METER, Q4W
     Route: 065
  39. PEMETREXED [Concomitant]
     Active Substance: PEMETREXED
     Dosage: 300 MILLIGRAM/SQ. METER, Q4W
     Route: 065
  40. PEMETREXED [Concomitant]
     Active Substance: PEMETREXED
     Dosage: 300 MILLIGRAM/SQ. METER, Q4W
     Route: 065

REACTIONS (7)
  - Neutropenia [Not Recovered/Not Resolved]
  - Thrombocytopenia [Not Recovered/Not Resolved]
  - Epistaxis [Unknown]
  - Carcinoembryonic antigen increased [Unknown]
  - Metastases to lung [Unknown]
  - Cataract [Unknown]
  - Anaemia [Not Recovered/Not Resolved]
